FAERS Safety Report 23291460 (Version 3)
Quarter: 2024Q1

REPORT INFORMATION
  Report Type: Report from Study
  Country: US (occurrence: US)
  Receive Date: 20231213
  Receipt Date: 20240108
  Transmission Date: 20240409
  Serious: Yes (Other)
  Sender: FDA-Public Use
  Company Number: US-Accord-395295

PATIENT
  Sex: Female
  Weight: 70.5 kg

DRUGS (3)
  1. MYCOPHENOLIC ACID [Suspect]
     Active Substance: MYCOPHENOLIC ACID
     Indication: Antiphospholipid syndrome
     Dosage: FREQUENCY: BID?DAILY DOSE: 2000 MG
     Route: 048
     Dates: start: 20210602, end: 20231201
  2. ASPIRIN [Concomitant]
     Active Substance: ASPIRIN
     Dosage: FREQUENCY: DAILY
  3. RIVAROXABAN [Concomitant]
     Active Substance: RIVAROXABAN
     Indication: Antiphospholipid syndrome
     Dosage: FREQUENCY: DAILY??GESTATIONAL AGE AT LAST EXPOSURE: 08 WEEKS
     Dates: start: 20220216, end: 20231201

REACTIONS (1)
  - Maternal exposure during pregnancy [Unknown]
